FAERS Safety Report 11164993 (Version 1)
Quarter: 2015Q2

REPORT INFORMATION
  Report Type: Spontaneous
  Country: US (occurrence: US)
  Receive Date: 20150604
  Receipt Date: 20150604
  Transmission Date: 20150821
  Serious: Yes (Hospitalization)
  Sender: FDA-Public Use
  Company Number: US-BIOGENIDEC-2015BI075382

PATIENT
  Age: 59 Year
  Sex: Female

DRUGS (14)
  1. AMITRIPTYLINE HCL [Concomitant]
     Active Substance: AMITRIPTYLINE
  2. VITAMIN C [Concomitant]
     Active Substance: ASCORBIC ACID
  3. ASPIRIN ADULT LOW STRENGTH [Concomitant]
     Active Substance: ASPIRIN
  4. FLUTICASONE PROPIONATE. [Concomitant]
     Active Substance: FLUTICASONE PROPIONATE
  5. BACLOFEN. [Concomitant]
     Active Substance: BACLOFEN
  6. AMPYRA [Concomitant]
     Active Substance: DALFAMPRIDINE
  7. LEVOTHYROXINE SODIUM. [Concomitant]
     Active Substance: LEVOTHYROXINE SODIUM
  8. TECFIDERA [Suspect]
     Active Substance: DIMETHYL FUMARATE
     Indication: MULTIPLE SCLEROSIS
     Route: 048
     Dates: start: 201308
  9. FOSAMAX [Concomitant]
     Active Substance: ALENDRONATE SODIUM
  10. PRAVASTATIN SODIUM. [Concomitant]
     Active Substance: PRAVASTATIN SODIUM
  11. CALCIUM D [Concomitant]
     Active Substance: CALCIUM\VITAMIN D
  12. FISH OIL [Concomitant]
     Active Substance: FISH OIL
  13. MACRODANTIN [Concomitant]
     Active Substance: NITROFURANTOIN
  14. DIAZEPAM. [Concomitant]
     Active Substance: DIAZEPAM

REACTIONS (2)
  - Oral infection [Unknown]
  - Blood count abnormal [Unknown]
